FAERS Safety Report 4743926-1 (Version None)
Quarter: 2005Q3

REPORT INFORMATION
  Report Type: 
  Country: None (occurrence: None)
  Receive Date: 20050810
  Receipt Date: 20050810
  Transmission Date: 20060218
  Serious: Yes (Hospitalization)
  Sender: FDA-Public Use
  Company Number: None

PATIENT
  Age: 57 Year
  Sex: Male
  Weight: 98.1 kg

DRUGS (12)
  1. ASPIRIN [Suspect]
     Indication: CARDIOVASCULAR DISORDER
     Dosage: 81 MG DAILY
  2. ALBUTEROL 90 [Concomitant]
  3. IPRATROP [Concomitant]
  4. DOCUSATE [Concomitant]
  5. PHENTYOIN NA (DILANTIN) [Concomitant]
  6. ALOH/MGOH/SIMTH XTRA STRENGTH [Concomitant]
  7. LACTULOSE [Concomitant]
  8. SIMVASTATIN [Concomitant]
  9. FERROUS SULFATE TAB [Concomitant]
  10. HYDROCODONE 5/ACETAMINOPHEN [Concomitant]
  11. OMEPRAZOLE [Concomitant]
  12. PSEUDOEPHEDRINE HCL [Concomitant]

REACTIONS (10)
  - ABDOMINAL PAIN UPPER [None]
  - DUODENITIS [None]
  - ENDOSCOPY GASTROINTESTINAL ABNORMAL [None]
  - EROSIVE OESOPHAGITIS [None]
  - GASTRIC DISORDER [None]
  - GASTROOESOPHAGEAL REFLUX DISEASE [None]
  - HAEMATEMESIS [None]
  - NAUSEA [None]
  - OCCULT BLOOD POSITIVE [None]
  - OESOPHAGITIS [None]
